FAERS Safety Report 7034052-X (Version None)
Quarter: 2010Q4

REPORT INFORMATION
  Report Type: 
  Country: None (occurrence: None)
  Receive Date: 20101007
  Receipt Date: 20100826
  Transmission Date: 20110411
  Serious: Yes (Hospitalization, Other)
  Sender: FDA-Public Use
  Company Number: US-BAXTER-2010BH006214

PATIENT
  Age: 82 Year
  Sex: Female
  Weight: 79 kg

DRUGS (20)
  1. HEPARIN SODIUM 5,000 UNITS IN DEXTROSE 5% [Suspect]
     Indication: PULMONARY EMBOLISM
     Route: 041
     Dates: start: 20080316, end: 20080316
  2. WARFARIN SODIUM [Suspect]
     Indication: PULMONARY EMBOLISM
     Route: 048
     Dates: start: 20080316, end: 20080316
  3. WARFARIN SODIUM [Suspect]
     Route: 048
     Dates: start: 20080314, end: 20080314
  4. LOVENOX [Suspect]
     Indication: PULMONARY EMBOLISM
     Route: 058
     Dates: start: 20080314, end: 20080316
  5. AMIODARONE [Suspect]
     Indication: PRODUCT USED FOR UNKNOWN INDICATION
     Route: 048
     Dates: start: 20080301, end: 20080319
  6. MULTI-VITAMINS [Concomitant]
     Indication: PRODUCT USED FOR UNKNOWN INDICATION
     Route: 065
  7. CALCIUM CITRATE [Concomitant]
     Indication: PRODUCT USED FOR UNKNOWN INDICATION
     Route: 065
  8. ASPIRIN [Concomitant]
     Indication: PRODUCT USED FOR UNKNOWN INDICATION
     Route: 065
  9. T [Concomitant]
     Indication: PRODUCT USED FOR UNKNOWN INDICATION
     Route: 065
  10. HYDROCHLOROTHIAZIDE [Concomitant]
     Indication: PRODUCT USED FOR UNKNOWN INDICATION
     Route: 065
  11. DIGITEK [Concomitant]
     Indication: PRODUCT USED FOR UNKNOWN INDICATION
     Route: 065
  12. LEVOTHYROXINE [Concomitant]
     Indication: PRODUCT USED FOR UNKNOWN INDICATION
     Route: 065
  13. CARTIA XT [Concomitant]
     Indication: PRODUCT USED FOR UNKNOWN INDICATION
     Route: 065
  14. ROSANAL [Concomitant]
     Indication: PRODUCT USED FOR UNKNOWN INDICATION
     Route: 065
  15. DME [Concomitant]
     Indication: PRODUCT USED FOR UNKNOWN INDICATION
     Route: 065
  16. ARICEPT [Concomitant]
     Indication: PRODUCT USED FOR UNKNOWN INDICATION
     Route: 065
  17. FOSAMAX [Concomitant]
     Indication: PRODUCT USED FOR UNKNOWN INDICATION
     Route: 048
  18. GLUCOSAMINE [Concomitant]
     Indication: PRODUCT USED FOR UNKNOWN INDICATION
     Route: 065
  19. PRILOSEC [Concomitant]
     Indication: PRODUCT USED FOR UNKNOWN INDICATION
     Route: 048
  20. NAMENDA [Concomitant]
     Indication: PRODUCT USED FOR UNKNOWN INDICATION
     Route: 048

REACTIONS (15)
  - ACUTE RESPIRATORY FAILURE [None]
  - ADRENAL INSUFFICIENCY [None]
  - ANAEMIA [None]
  - ATELECTASIS [None]
  - HYPERHIDROSIS [None]
  - HYPERKALAEMIA [None]
  - HYPOTENSION [None]
  - INTRA-ABDOMINAL HAEMORRHAGE [None]
  - MENTAL STATUS CHANGES [None]
  - PLEURAL EFFUSION [None]
  - RENAL FAILURE ACUTE [None]
  - SEPSIS [None]
  - TACHYCARDIA [None]
  - THROMBOCYTOPENIA [None]
  - URINARY TRACT INFECTION [None]
